FAERS Safety Report 9853392 (Version 1)
Quarter: 2014Q1

REPORT INFORMATION
  Report Type: Spontaneous
  Country: US (occurrence: US)
  Receive Date: 20140129
  Receipt Date: 20140129
  Transmission Date: 20141002
  Serious: No
  Sender: FDA-Public Use
  Company Number: US-TEVA-455623USA

PATIENT
  Age: 37 Year
  Sex: Female

DRUGS (1)
  1. NUVIGIL [Suspect]
     Indication: FATIGUE
     Dosage: 150 MILLIGRAM DAILY;
     Route: 048
     Dates: start: 2011, end: 201303

REACTIONS (1)
  - Off label use [Unknown]
